FAERS Safety Report 5903766-4 (Version None)
Quarter: 2008Q3

REPORT INFORMATION
  Report Type: 
  Country: None (occurrence: None)
  Receive Date: 20080930
  Receipt Date: 20080917
  Transmission Date: 20090109
  Serious: Yes (Other)
  Sender: FDA-Public Use
  Company Number: US-ELI_LILLY_AND_COMPANY-US200809004256

PATIENT
  Sex: Female

DRUGS (7)
  1. BYETTA [Suspect]
     Dosage: 10 UG, UNKNOWN
     Dates: start: 20071001, end: 20080812
  2. DIOVAN [Concomitant]
     Dosage: 80 MG, UNK
  3. ZOLOFT [Concomitant]
     Dosage: 30 MG, UNK
  4. AMARYL [Concomitant]
     Dosage: 4 MG, 2/D
  5. ACTOS [Concomitant]
     Dosage: 15 MG, 2/D
  6. METFORMIN HCL [Concomitant]
     Dosage: 850 MG, 2/D
  7. CRESTOR [Concomitant]
     Dosage: 10 MG, DAILY (1/D)

REACTIONS (1)
  - PANCREATITIS [None]
